FAERS Safety Report 11266375 (Version 2)
Quarter: 2016Q1

REPORT INFORMATION
  Report Type: Spontaneous
  Country: GR (occurrence: GR)
  Receive Date: 20150713
  Receipt Date: 20160204
  Transmission Date: 20160525
  Serious: Yes (Other)
  Sender: FDA-Public Use
  Company Number: PHHY2015GR080944

PATIENT
  Sex: Female
  Weight: 2.51 kg

DRUGS (2)
  1. SOTALOL. [Suspect]
     Active Substance: SOTALOL
     Indication: FOETAL EXPOSURE DURING PREGNANCY
     Dosage: MATERNAL DOSE (80 MG QD)
     Route: 064
  2. DIGOXIN. [Suspect]
     Active Substance: DIGOXIN
     Indication: FOETAL EXPOSURE DURING PREGNANCY
     Dosage: MATERNAL DOSE (250 UG, QD)
     Route: 064

REACTIONS (7)
  - Tachycardia foetal [Recovered/Resolved]
  - Heart valve incompetence [Recovered/Resolved]
  - Foetal exposure during pregnancy [Unknown]
  - Premature baby [Unknown]
  - Foetal cardiac disorder [Recovered/Resolved]
  - Foetal heart rate increased [Recovered/Resolved]
  - Cardiac failure [Recovered/Resolved]
